FAERS Safety Report 7062323-X (Version None)
Quarter: 2010Q4

REPORT INFORMATION
  Report Type: 
  Country: None (occurrence: None)
  Receive Date: 20101026
  Receipt Date: 20101015
  Transmission Date: 20110411
  Serious: Yes (Hospitalization)
  Sender: FDA-Public Use
  Company Number: CO-GENENTECH-308196

PATIENT
  Sex: Female

DRUGS (2)
  1. MABTHERA [Suspect]
     Indication: NON-HODGKIN'S LYMPHOMA
     Dosage: 600 MG, Q21D
     Route: 042
     Dates: start: 20090612
  2. MABTHERA [Suspect]
     Dosage: 600 MG, Q21D
     Route: 042

REACTIONS (1)
  - CARDIAC DISORDER [None]
